FAERS Safety Report 13362352 (Version 1)
Quarter: 2017Q1

REPORT INFORMATION
  Report Type: Spontaneous
  Country: US (occurrence: US)
  Receive Date: 20170322
  Receipt Date: 20170322
  Transmission Date: 20170429
  Serious: Yes (Disabling)
  Sender: FDA-Public Use
  Company Number: None

PATIENT
  Age: 16 Year
  Sex: Male
  Weight: 67.5 kg

DRUGS (4)
  1. NOVOLOG [Suspect]
     Active Substance: INSULIN ASPART
     Indication: DIABETES MELLITUS
     Dosage: ?          QUANTITY:10 INJECTION(S);?
     Route: 058
     Dates: start: 20170127, end: 20170320
  2. OMNIPOD INSULIN PUMP [Concomitant]
     Active Substance: DEVICE
  3. DEXCOM CGM [Concomitant]
  4. INSULIN [Concomitant]
     Active Substance: INSULIN NOS

REACTIONS (5)
  - Drug hypersensitivity [None]
  - Colitis [None]
  - Rash [None]
  - Oral mucosal blistering [None]
  - Pain [None]

NARRATIVE: CASE EVENT DATE: 20170127
